FAERS Safety Report 23789625 (Version 1)
Quarter: 2024Q2

REPORT INFORMATION
  Report Type: Spontaneous
  Country: US (occurrence: None)
  Receive Date: 20240426
  Receipt Date: 20240426
  Transmission Date: 20240716
  Serious: No
  Sender: FDA-Public Use
  Company Number: None

PATIENT
  Age: 18 Year
  Sex: Female
  Weight: 100.1 kg

DRUGS (3)
  1. BLEOMYCIN [Suspect]
     Active Substance: BLEOMYCIN SULFATE
     Dosage: OTHER QUANTITY : 60 UNIT;?
     Dates: end: 20211221
  2. CISPLATIN [Suspect]
     Active Substance: CISPLATIN
     Dates: end: 20211220
  3. ETOPOSIDE [Suspect]
     Active Substance: ETOPOSIDE
     Dates: end: 20211220

REACTIONS (2)
  - Pleural effusion [None]
  - Vomiting [None]

NARRATIVE: CASE EVENT DATE: 20220119
